FAERS Safety Report 6937123-9 (Version None)
Quarter: 2010Q3

REPORT INFORMATION
  Report Type: 
  Country: None (occurrence: None)
  Receive Date: 20100823
  Receipt Date: 20100809
  Transmission Date: 20110219
  Serious: Yes (Hospitalization)
  Sender: FDA-Public Use
  Company Number: PL-MYLANLABS-2010S1014395

PATIENT
  Age: 52 Year
  Sex: Male

DRUGS (2)
  1. AZATHIOPRINE [Suspect]
     Indication: PEMPHIGUS
     Route: 065
  2. PREDNISOLONE [Suspect]
     Indication: PEMPHIGUS
     Route: 065

REACTIONS (2)
  - HAEMORRHAGIC STROKE [None]
  - PNEUMONIA [None]
